FAERS Safety Report 14578820 (Version 2)
Quarter: 2018Q1

REPORT INFORMATION
  Report Type: Spontaneous
  Country: SE (occurrence: SE)
  Receive Date: 20180227
  Receipt Date: 20180312
  Transmission Date: 20180509
  Serious: Yes (Disabling)
  Sender: FDA-Public Use
  Company Number: SE-SA-2018SA049752

PATIENT
  Age: 77 Year
  Sex: Female

DRUGS (12)
  1. ALVEDON [Concomitant]
     Active Substance: ACETAMINOPHEN
     Dosage: 500MG 2X1-2
     Route: 065
  2. PROPAVAN [Concomitant]
     Active Substance: PROPIOMAZINE
     Route: 065
  3. LANTUS [Suspect]
     Active Substance: INSULIN GLARGINE
     Dosage: DOSE:3 UNIT(S)
     Route: 051
     Dates: start: 20180104
  4. SOLOSTAR [Suspect]
     Active Substance: DEVICE
     Indication: TYPE 1 DIABETES MELLITUS
     Dates: start: 20171219, end: 20180103
  5. NOVORAPID [Suspect]
     Active Substance: INSULIN ASPART
     Dosage: DOSE:3 UNIT(S)
     Route: 065
     Dates: start: 20170524
  6. HUMALOG [Concomitant]
     Active Substance: INSULIN LISPRO
     Route: 065
     Dates: end: 20170524
  7. LANTUS [Concomitant]
     Active Substance: INSULIN GLARGINE
     Route: 065
  8. LASIX [Concomitant]
     Active Substance: FUROSEMIDE
     Route: 065
  9. IMOVANE [Concomitant]
     Active Substance: ZOPICLONE
     Route: 065
  10. TOUJEO [Suspect]
     Active Substance: INSULIN GLARGINE
     Indication: TYPE 1 DIABETES MELLITUS
     Dosage: DOSE:5 UNIT(S)
     Route: 058
     Dates: start: 20171219, end: 20180103
  11. AMLODIPINE [Concomitant]
     Active Substance: AMLODIPINE BESYLATE
     Route: 065
  12. CANDESARSTAD [Concomitant]
     Route: 065

REACTIONS (4)
  - Pain [Recovered/Resolved]
  - Muscle spasms [Recovered/Resolved]
  - Gait inability [Recovered/Resolved]
  - Myalgia [Recovered/Resolved]

NARRATIVE: CASE EVENT DATE: 20171226
